FAERS Safety Report 20993660 (Version 3)
Quarter: 2022Q2

REPORT INFORMATION
  Report Type: Spontaneous
  Country: US (occurrence: US)
  Receive Date: 20220622
  Receipt Date: 20220628
  Transmission Date: 20220721
  Serious: No
  Sender: FDA-Public Use
  Company Number: US-PFIZER INC-202200857304

PATIENT
  Age: 52 Year
  Sex: Female
  Weight: 72.57 kg

DRUGS (1)
  1. RUXIENCE [Suspect]
     Active Substance: RITUXIMAB-PVVR
     Indication: Sjogren^s syndrome
     Dosage: UNK
     Dates: start: 20220525

REACTIONS (7)
  - Urticaria [Not Recovered/Not Resolved]
  - Skin lesion [Recovering/Resolving]
  - Restless legs syndrome [Recovering/Resolving]
  - Pruritus [Unknown]
  - Off label use [Unknown]
  - Ulcer [Unknown]
  - Rash [Unknown]

NARRATIVE: CASE EVENT DATE: 20220527
